FAERS Safety Report 16770941 (Version 2)
Quarter: 2019Q4

REPORT INFORMATION
  Report Type: Spontaneous
  Country: CA (occurrence: CA)
  Receive Date: 20190904
  Receipt Date: 20191002
  Transmission Date: 20200122
  Serious: Yes (Hospitalization)
  Sender: FDA-Public Use
  Company Number: CA-HORIZON-PRO-0189-2019

PATIENT
  Age: 25 Year
  Sex: Female

DRUGS (11)
  1. SYNTHROID [Concomitant]
     Active Substance: LEVOTHYROXINE SODIUM
     Indication: HYPOTHYROIDISM
  2. PROCYSBI [Suspect]
     Active Substance: CYSTEAMINE BITARTRATE
     Indication: CYSTINOSIS
     Dosage: 825MG BID
     Dates: start: 20100101
  3. INDOMETHACIN. [Concomitant]
     Active Substance: INDOMETHACIN
  4. PANTALOC [Concomitant]
  5. SODIUM BICARBONATE. [Concomitant]
     Active Substance: SODIUM BICARBONATE
  6. CALCIUM CARBONATE. [Concomitant]
     Active Substance: CALCIUM CARBONATE
  7. CALCITRIOL. [Concomitant]
     Active Substance: CALCITRIOL
  8. K-DUR [Concomitant]
     Active Substance: POTASSIUM CHLORIDE
     Indication: DEPRESSION
  9. SERTRALINE [Concomitant]
     Active Substance: SERTRALINE HYDROCHLORIDE
     Indication: DEPRESSION
  10. FERROUS SULFATE. [Concomitant]
     Active Substance: FERROUS SULFATE
  11. MULTIVITAMINS [Concomitant]
     Active Substance: VITAMINS

REACTIONS (3)
  - Renal transplant [Recovered/Resolved]
  - Urethritis [Recovered/Resolved]
  - Cystitis [Recovered/Resolved]

NARRATIVE: CASE EVENT DATE: 20190626
